FAERS Safety Report 11763678 (Version 1)
Quarter: 2015Q4

REPORT INFORMATION
  Report Type: Spontaneous
  Country: US (occurrence: US)
  Receive Date: 20151120
  Receipt Date: 20151120
  Transmission Date: 20160304
  Serious: No
  Sender: FDA-Public Use
  Company Number: US-ELI_LILLY_AND_COMPANY-US201304004009

PATIENT
  Sex: Female

DRUGS (3)
  1. FORTEO [Suspect]
     Active Substance: TERIPARATIDE
     Indication: OSTEOPENIA
     Dosage: UNK, QD
     Dates: start: 20130404
  2. TYLENOL [Concomitant]
     Active Substance: ACETAMINOPHEN
  3. CALCIUM [Concomitant]
     Active Substance: CALCIUM

REACTIONS (9)
  - Back pain [Unknown]
  - Neck pain [Unknown]
  - Off label use [Unknown]
  - Musculoskeletal pain [Unknown]
  - Headache [Unknown]
  - Vein disorder [Unknown]
  - Arthralgia [Unknown]
  - Muscle spasms [Unknown]
  - Myalgia [Unknown]

NARRATIVE: CASE EVENT DATE: 20130404
